FAERS Safety Report 8809548 (Version 1)
Quarter: 2012Q4

REPORT INFORMATION
  Report Type: 
  Country: DE (occurrence: DE)
  Receive Date: 20120926
  Receipt Date: 20120926
  Transmission Date: 20130627
  Serious: Yes (Hospitalization)
  Sender: FDA-Public Use
  Company Number: DE-PFIZER INC-2012233564

PATIENT
  Age: 43 Year
  Sex: Female
  Weight: 89 kg

DRUGS (14)
  1. GENOTROPIN [Suspect]
     Indication: HYPOPITUITARISM
     Dosage: 0.6 mg, 1x/day (7injections/week)
     Route: 058
     Dates: start: 20060425
  2. HYDROCORTISONE [Concomitant]
     Indication: BLOOD CORTICOTROPHIN DECREASED
     Dosage: UNK
     Dates: start: 20011030
  3. TESTOSTERONE [Concomitant]
     Indication: BLOOD LUTEINISING HORMONE DECREASED
     Dosage: UNK
     Dates: start: 20040420
  4. TESTOSTERONE [Concomitant]
     Indication: BLOOD FOLLICLE STIMULATING HORMONE DECREASED
  5. TESTOSTERONE [Concomitant]
     Indication: HYPOGONADISM FEMALE
  6. CABERGOLINE [Concomitant]
     Indication: NEOPLASM
     Dosage: UNK
     Dates: start: 20040420
  7. ESTRADIOL [Concomitant]
     Indication: BLOOD LUTEINISING HORMONE DECREASED
     Dosage: UNK
     Dates: start: 20040420
  8. ESTRADIOL [Concomitant]
     Indication: BLOOD FOLLICLE STIMULATING HORMONE DECREASED
  9. ESTRADIOL [Concomitant]
     Indication: HYPOGONADISM FEMALE
  10. UTROGEST [Concomitant]
     Indication: BLOOD LUTEINISING HORMONE DECREASED
     Dosage: UNK
     Dates: start: 20041122
  11. UTROGEST [Concomitant]
     Indication: BLOOD FOLLICLE STIMULATING HORMONE DECREASED
  12. UTROGEST [Concomitant]
     Indication: HYPOGONADISM FEMALE
  13. LEVOTHYROXINE [Concomitant]
     Indication: BLOOD THYROID STIMULATING HORMONE DECREASED
     Dosage: UNK
     Dates: start: 20011030
  14. LEVOTHYROXINE [Concomitant]
     Indication: PRIMARY HYPOTHYROIDISM

REACTIONS (1)
  - Arthropathy [Unknown]
